FAERS Safety Report 18762157 (Version 6)
Quarter: 2023Q2

REPORT INFORMATION
  Report Type: Spontaneous
  Country: US (occurrence: US)
  Receive Date: 20210120
  Receipt Date: 20230509
  Transmission Date: 20230722
  Serious: Yes (Death, Life-Threatening, Other)
  Sender: FDA-Public Use
  Company Number: NVSC2021US010356

PATIENT
  Age: 3 Month
  Sex: Male
  Weight: 4 kg

DRUGS (4)
  1. ZOLGENSMA [Suspect]
     Active Substance: ONASEMNOGENE ABEPARVOVEC-XIOI
     Indication: Spinal muscular atrophy
     Dosage: 22 ML, ONCE/SINGLE(1 DF, 1.1 X 10(14) VG/KG)
     Route: 042
     Dates: start: 20201217, end: 20201217
  2. SODIUM GLUCONATE [Concomitant]
     Active Substance: SODIUM GLUCONATE
     Indication: Product used for unknown indication
     Dosage: 200 CC
     Route: 065
  3. SODIUM BICARBONATE [Concomitant]
     Active Substance: SODIUM BICARBONATE
     Indication: Product used for unknown indication
     Dosage: UNK
     Route: 065
  4. DEXTROSE [Concomitant]
     Active Substance: DEXTROSE\DEXTROSE MONOHYDRATE
     Indication: Product used for unknown indication
     Dosage: UNK
     Route: 065

REACTIONS (9)
  - Respiratory failure [Fatal]
  - Cyanosis [Fatal]
  - Respiratory arrest [Fatal]
  - Cardiac arrest [Fatal]
  - Gait disturbance [Not Recovered/Not Resolved]
  - Brain injury [Unknown]
  - Aspartate aminotransferase increased [Unknown]
  - Alanine aminotransferase increased [Unknown]
  - Illness [Unknown]

NARRATIVE: CASE EVENT DATE: 20210115
